FAERS Safety Report 8960930 (Version 1)
Quarter: 2012Q4

REPORT INFORMATION
  Report Type: 
  Country: US (occurrence: US)
  Receive Date: 20121212
  Receipt Date: 20121212
  Transmission Date: 20130627
  Serious: Yes (Other)
  Sender: FDA-Public Use
  Company Number: PHEH2012US020180

PATIENT
  Age: 43 Year
  Sex: Female
  Weight: 68.03 kg

DRUGS (9)
  1. GILENYA [Suspect]
     Dosage: 0.5 mg, QD
     Route: 048
  2. ATIVAN [Concomitant]
     Dosage: 1 mg, UNK
  3. LYRICA [Concomitant]
     Dosage: 100 mg, UNK
  4. FOLIC ACID [Concomitant]
     Dosage: 1 mg, UNK
  5. ALPRAZOLAM [Concomitant]
     Dosage: 0.25 mg, UNK
  6. LEXAPRO [Concomitant]
     Dosage: 10 mg, UNK
  7. ABILIFY [Concomitant]
     Dosage: 10 mg, UNK
  8. COLACE [Concomitant]
     Dosage: 100 mg, UNK
  9. TOPIRAMATE [Concomitant]
     Dosage: 100 mg, UNK

REACTIONS (3)
  - Porphyria non-acute [Recovering/Resolving]
  - Blister [Recovering/Resolving]
  - Skin discolouration [Recovering/Resolving]
